FAERS Safety Report 4487768-3 (Version None)
Quarter: 2004Q4

REPORT INFORMATION
  Report Type: 
  Country: None (occurrence: None)
  Receive Date: 20041027
  Receipt Date: 20041027
  Transmission Date: 20050328
  Serious: Yes (Hospitalization)
  Sender: FDA-Public Use
  Company Number: None

PATIENT
  Age: 76 Year
  Sex: Female
  Weight: 81.6 kg

DRUGS (11)
  1. ZOCOR [Suspect]
     Indication: HYPERCHOLESTEROLAEMIA
     Dosage: 80 MG PO QHS
     Route: 048
     Dates: start: 20040301, end: 20041013
  2. TELDRIN 12 MG [Concomitant]
  3. ASPIRIN [Concomitant]
  4. AMARYL [Concomitant]
  5. KCL TAB [Concomitant]
  6. VERELAN [Concomitant]
  7. GLUCOPHAGE [Concomitant]
  8. PLAVIX [Concomitant]
  9. PREMARIN [Concomitant]
  10. DIOVAN HCT [Concomitant]
  11. LASIX [Concomitant]

REACTIONS (3)
  - ASTHENIA [None]
  - BACK PAIN [None]
  - RHABDOMYOLYSIS [None]
